FAERS Safety Report 19931272 (Version 2)
Quarter: 2021Q4

REPORT INFORMATION
  Report Type: Spontaneous
  Country: US (occurrence: US)
  Receive Date: 20211008
  Receipt Date: 20211026
  Transmission Date: 20220303
  Serious: Yes (Hospitalization, Other)
  Sender: FDA-Public Use
  Company Number: US-GLOBAL BLOOD THERAPEUTICS INC-US-GBT-21-03448

PATIENT
  Sex: Female

DRUGS (1)
  1. OXBRYTA [Suspect]
     Active Substance: VOXELOTOR
     Indication: Sickle cell disease
     Dates: start: 20200227

REACTIONS (5)
  - Sickle cell anaemia with crisis [Unknown]
  - Hyperkalaemia [Unknown]
  - Cardiac failure congestive [Unknown]
  - Pulmonary hypertension [Unknown]
  - Therapy non-responder [Unknown]
